FAERS Safety Report 23617213 (Version 1)
Quarter: 2024Q1

REPORT INFORMATION
  Report Type: Spontaneous
  Country: US (occurrence: None)
  Receive Date: 20240309
  Receipt Date: 20240309
  Transmission Date: 20240410
  Serious: Yes (unspecified)
  Sender: FDA-Public Use
  Company Number: None

PATIENT
  Age: 38 Year
  Sex: Male
  Weight: 90 kg

DRUGS (2)
  1. NARCAN [Suspect]
     Active Substance: NALOXONE HYDROCHLORIDE
     Indication: Overdose
     Dates: start: 20240306, end: 20240307
  2. MORPHINE [Suspect]
     Active Substance: MORPHINE

REACTIONS (9)
  - Seizure [None]
  - Brain injury [None]
  - Lethargy [None]
  - Electric shock sensation [None]
  - Skin burning sensation [None]
  - Salivary hypersecretion [None]
  - Foaming at mouth [None]
  - Pruritus [None]
  - Loss of therapeutic response [None]

NARRATIVE: CASE EVENT DATE: 20240306
